FAERS Safety Report 9367926 (Version 1)
Quarter: 2013Q2

REPORT INFORMATION
  Report Type: Spontaneous
  Country: US (occurrence: US)
  Receive Date: 20130625
  Receipt Date: 20130625
  Transmission Date: 20140414
  Serious: No
  Sender: FDA-Public Use
  Company Number: US-ASTELLAS-2013US000830

PATIENT
  Sex: Female
  Weight: 82 kg

DRUGS (11)
  1. VESICARE [Suspect]
     Indication: HYPERTONIC BLADDER
     Dosage: 5 MG, UID/QD
     Route: 048
     Dates: start: 2008
  2. VESICARE [Suspect]
     Dosage: TWO 5 MG TABLETS DAILY IN THE MORNING
     Route: 048
  3. DIAZEPAM [Concomitant]
     Indication: STRESS
     Dosage: 10 MG, TID
     Route: 048
  4. DIAZEPAM [Concomitant]
     Indication: ANXIETY
  5. CARISOPRODOL [Concomitant]
     Indication: NERVE INJURY
     Dosage: 350 MG, TID
     Route: 048
  6. CARISOPRODOL [Concomitant]
     Indication: ARTHRITIS
  7. CITALOPRAM HYDROBROMIDE [Concomitant]
     Indication: BIPOLAR DISORDER
     Dosage: 40 MG, UID/QD
     Route: 048
  8. LISINOPRIL [Concomitant]
     Indication: BLOOD PRESSURE
     Dosage: 10 MG, UID/QD
     Route: 048
  9. AMBIEN [Concomitant]
     Indication: SLEEP DISORDER
     Dosage: 10 MG, QHS
     Route: 048
  10. ALPRAZOLAM [Concomitant]
     Indication: ANXIETY
     Dosage: 2 MG, TID
     Route: 048
  11. ACETAMINOPHEN W/HYDROCODONE [Concomitant]
     Indication: PAIN
     Dosage: 500 MG, QID
     Route: 048

REACTIONS (1)
  - Drug ineffective [Recovering/Resolving]
